FAERS Safety Report 15178339 (Version 2)
Quarter: 2018Q4

REPORT INFORMATION
  Report Type: Spontaneous
  Country: US (occurrence: US)
  Receive Date: 20180721
  Receipt Date: 20181018
  Transmission Date: 20190204
  Serious: Yes (Hospitalization)
  Sender: FDA-Public Use
  Company Number: US-JNJFOC-20180712562

PATIENT
  Age: 70 Year
  Sex: Female

DRUGS (1)
  1. XARELTO [Suspect]
     Active Substance: RIVAROXABAN
     Indication: PULMONARY EMBOLISM
     Route: 048
     Dates: start: 20160218, end: 20160220

REACTIONS (2)
  - Upper gastrointestinal haemorrhage [Recovering/Resolving]
  - Post procedural haematoma [Recovering/Resolving]

NARRATIVE: CASE EVENT DATE: 201602
